FAERS Safety Report 8107499-8 (Version None)
Quarter: 2012Q1

REPORT INFORMATION
  Report Type: 
  Country: None (occurrence: None)
  Receive Date: 20120202
  Receipt Date: 20120124
  Transmission Date: 20120608
  Serious: Yes (Other)
  Sender: FDA-Public Use
  Company Number: FR-MPIJNJ-2011-04646

PATIENT

DRUGS (9)
  1. INNOHEP [Concomitant]
     Indication: THROMBOSIS PROPHYLAXIS
     Dosage: 2500 UNK, UNK
     Route: 058
     Dates: start: 20110823
  2. ZELITREX                           /01269702/ [Concomitant]
     Indication: ANTIVIRAL PROPHYLAXIS
     Dosage: UNK
     Route: 048
     Dates: start: 20110823
  3. VELCADE [Suspect]
     Dosage: UNK
  4. BACTRIM [Concomitant]
     Indication: ANTIFUNGAL PROPHYLAXIS
     Dosage: UNK
     Route: 048
     Dates: start: 20110823
  5. NEORECORMON [Concomitant]
  6. DEXAMETHASONE [Suspect]
     Indication: MULTIPLE MYELOMA
     Dosage: 20 MG, CYCLIC
     Route: 065
     Dates: start: 20110906, end: 20111029
  7. AMOXICILLIN [Concomitant]
     Indication: ERYSIPELAS
     Dosage: UNK
     Route: 048
     Dates: start: 20100801
  8. REVLIMID [Suspect]
     Indication: MULTIPLE MYELOMA
     Dosage: 25 MG, CYCLIC
     Route: 065
     Dates: start: 20110906, end: 20111029
  9. VELCADE [Suspect]
     Indication: MULTIPLE MYELOMA
     Dosage: 1 MG, CYCLIC
     Route: 065
     Dates: start: 20110906, end: 20111028

REACTIONS (2)
  - MUSCLE SPASMS [None]
  - THROMBOPHLEBITIS SUPERFICIAL [None]
